FAERS Safety Report 5023329-5 (Version None)
Quarter: 2006Q2

REPORT INFORMATION
  Report Type: 
  Country: None (occurrence: None)
  Receive Date: 20060501
  Receipt Date: 20060125
  Transmission Date: 20061013
  Serious: Yes (Other)
  Sender: FDA-Public Use
  Company Number: US200601004522

PATIENT
  Age: 35 Year
  Sex: Male

DRUGS (4)
  1. SYMBYAX [Suspect]
     Indication: BIPOLAR I DISORDER
     Dosage: D/F
     Dates: start: 20050701
  2. PREDNISONE TAB [Concomitant]
  3. METHOTREXATE [Concomitant]
  4. LEUCOVORIN CALCIUM [Concomitant]

REACTIONS (1)
  - WEIGHT INCREASED [None]
